FAERS Safety Report 14687872 (Version 4)
Quarter: 2018Q3

REPORT INFORMATION
  Report Type: Spontaneous
  Country: BR (occurrence: BR)
  Receive Date: 20180328
  Receipt Date: 20180904
  Transmission Date: 20181010
  Serious: Yes (Hospitalization, Other)
  Sender: FDA-Public Use
  Company Number: PHHY2018BR050698

PATIENT
  Sex: Female
  Weight: 56 kg

DRUGS (7)
  1. DIAZEPAM. [Concomitant]
     Active Substance: DIAZEPAM
     Indication: DEPRESSION
     Dosage: 2 DF, QD
     Route: 048
  2. TYLENOL [Concomitant]
     Active Substance: ACETAMINOPHEN
     Indication: PAIN
     Dosage: UNK
     Route: 065
  3. CODATEN [Suspect]
     Active Substance: CODEINE PHOSPHATE\DICLOFENAC SODIUM
     Indication: OSTEOARTHRITIS
     Dosage: 2 DF, QD (SPLIT THE TABLET AND TAKE IT WHEN FEELS PAIN)
     Route: 048
  4. CODEINE [Suspect]
     Active Substance: CODEINE
     Indication: PRODUCT USED FOR UNKNOWN INDICATION
     Dosage: UNK
     Route: 065
  5. DIPYRONE [Concomitant]
     Active Substance: DIPYRONE
     Indication: PAIN
     Dosage: UNK
     Route: 065
  6. CODATEN [Suspect]
     Active Substance: CODEINE PHOSPHATE\DICLOFENAC SODIUM
     Indication: PAIN
  7. DIAZEPAM. [Concomitant]
     Active Substance: DIAZEPAM
     Indication: ANXIETY
     Dosage: 1 DF, QD
     Route: 048

REACTIONS (13)
  - Wrong technique in product usage process [Unknown]
  - Ear disorder [Unknown]
  - Rib fracture [Unknown]
  - Pain [Recovering/Resolving]
  - Drug ineffective [Unknown]
  - Tendon rupture [Unknown]
  - Hip deformity [Unknown]
  - Suicidal ideation [Recovering/Resolving]
  - Dizziness [Recovering/Resolving]
  - Paralysis [Unknown]
  - Dyspnoea [Recovering/Resolving]
  - Malaise [Not Recovered/Not Resolved]
  - Bone disorder [Unknown]
